FAERS Safety Report 23450841 (Version 1)
Quarter: 2024Q1

REPORT INFORMATION
  Report Type: Spontaneous
  Country: IN (occurrence: IN)
  Receive Date: 20240129
  Receipt Date: 20240129
  Transmission Date: 20240410
  Serious: Yes (Life-Threatening, Other)
  Sender: FDA-Public Use
  Company Number: IN-RDY-LIT/IND/24/0001318

PATIENT
  Age: 63 Year
  Sex: Female

DRUGS (2)
  1. GEMCITABINE [Suspect]
     Active Substance: GEMCITABINE
     Indication: Malignant fibrous histiocytoma
     Dates: start: 201808
  2. DOCETAXEL [Suspect]
     Active Substance: DOCETAXEL\DOCETAXEL ANHYDROUS
     Indication: Malignant fibrous histiocytoma
     Dates: start: 201808

REACTIONS (3)
  - Anaemia [Unknown]
  - Disease progression [Unknown]
  - Treatment failure [Unknown]
